FAERS Safety Report 13292484 (Version 1)
Quarter: 2017Q1

REPORT INFORMATION
  Report Type: Spontaneous
  Country: US (occurrence: US)
  Receive Date: 20170303
  Receipt Date: 20170303
  Transmission Date: 20170428
  Serious: Yes (Life-Threatening, Hospitalization)
  Sender: FDA-Public Use
  Company Number: None

PATIENT
  Age: 55 Year
  Sex: Male
  Weight: 63.38 kg

DRUGS (18)
  1. VICTOZA [Suspect]
     Active Substance: LIRAGLUTIDE
     Indication: TYPE 2 DIABETES MELLITUS
     Dates: start: 20160629, end: 20170223
  2. ZOCOR [Concomitant]
     Active Substance: SIMVASTATIN
  3. METFORMIN (GLUCOPHAGE) [Concomitant]
  4. LOVASTATIN. [Concomitant]
     Active Substance: LOVASTATIN
  5. LISINOPRIL. [Concomitant]
     Active Substance: LISINOPRIL
  6. TEMAZEPAM (RESTORIL) [Concomitant]
  7. FENOFIBRATE NANOCRYSTALIZED [Concomitant]
  8. CARVEDILOL (COREG) [Concomitant]
  9. SPIRONOLACTONE (ALDACTONE) [Concomitant]
  10. NITROGLYCERIN (NITROSTAT) [Concomitant]
  11. LISINOPRIL (PRINIVIL) [Concomitant]
  12. ALBUTEROL (PROVENTIL, VENTOLIN, PROAIR) [Concomitant]
  13. NEXIUM [Concomitant]
     Active Substance: ESOMEPRAZOLE MAGNESIUM
  14. METFORMIN [Concomitant]
     Active Substance: METFORMIN HYDROCHLORIDE
  15. GLIMEPIRIDE. [Concomitant]
     Active Substance: GLIMEPIRIDE
  16. NEXIUM [Concomitant]
     Active Substance: ESOMEPRAZOLE MAGNESIUM
  17. ASPIRIN. [Concomitant]
     Active Substance: ASPIRIN
  18. TRICOR [Concomitant]
     Active Substance: FENOFIBRATE

REACTIONS (3)
  - Cardiac failure congestive [None]
  - Cardiomyopathy [None]
  - Ventricular tachycardia [None]

NARRATIVE: CASE EVENT DATE: 20170214
